FAERS Safety Report 24206951 (Version 1)
Quarter: 2024Q3

REPORT INFORMATION
  Report Type: Spontaneous
  Country: DE (occurrence: DE)
  Receive Date: 20240813
  Receipt Date: 20240813
  Transmission Date: 20241017
  Serious: Yes (Hospitalization)
  Sender: PRINSTON PHARMACEUTICAL
  Company Number: DE-PRINSTON PHARMACEUTICAL INC.-2024PRN00304

PATIENT
  Age: 37 Year
  Sex: Female

DRUGS (1)
  1. AMPHETAMINE [Suspect]
     Active Substance: AMPHETAMINE

REACTIONS (3)
  - Locked-in syndrome [Recovering/Resolving]
  - Brain stem haemorrhage [Recovering/Resolving]
  - Drug abuse [Recovered/Resolved]
